FAERS Safety Report 10256066 (Version 2)
Quarter: 2014Q3

REPORT INFORMATION
  Report Type: Report from Study
  Country: BE (occurrence: BE)
  Receive Date: 20140624
  Receipt Date: 20140701
  Transmission Date: 20150326
  Serious: No
  Sender: FDA-Public Use
  Company Number: BE-BAXTER-2014BAX033370

PATIENT
  Age: 8 Year
  Sex: Male

DRUGS (1)
  1. ADVATE [Suspect]
     Active Substance: ANTIHEMOPHILIC FACTOR, HUMAN RECOMBINANT
     Indication: FACTOR VIII DEFICIENCY
     Route: 051
     Dates: start: 20140613

REACTIONS (3)
  - Haematoma [Recovering/Resolving]
  - Fall [Unknown]
  - Induration [Unknown]

NARRATIVE: CASE EVENT DATE: 20140614
